FAERS Safety Report 11457353 (Version 1)
Quarter: 2015Q3

REPORT INFORMATION
  Report Type: Spontaneous
  Country: CH (occurrence: CH)
  Receive Date: 20150904
  Receipt Date: 20150904
  Transmission Date: 20151125
  Serious: Yes (Other)
  Sender: FDA-Public Use
  Company Number: PHHY2015CH105677

PATIENT
  Age: 74 Year
  Sex: Female

DRUGS (6)
  1. FASLODEX [Suspect]
     Active Substance: FULVESTRANT
     Indication: INVASIVE DUCTAL BREAST CARCINOMA
     Dosage: UNK
     Route: 065
     Dates: start: 20130713
  2. AFINITOR [Suspect]
     Active Substance: EVEROLIMUS
     Indication: INVASIVE DUCTAL BREAST CARCINOMA
     Dosage: 5 MG, UNK
     Route: 065
     Dates: start: 201506
  3. TAMOXIFEN [Suspect]
     Active Substance: TAMOXIFEN
     Indication: INVASIVE DUCTAL BREAST CARCINOMA
     Dosage: UNK
     Route: 065
     Dates: start: 1992, end: 2005
  4. ARIMIDEX [Suspect]
     Active Substance: ANASTROZOLE
     Indication: INVASIVE DUCTAL BREAST CARCINOMA
     Dosage: UNK
     Route: 065
  5. TAMOXIFEN [Suspect]
     Active Substance: TAMOXIFEN
     Dosage: UNK
     Route: 065
     Dates: start: 2010, end: 2011
  6. XGEVA [Suspect]
     Active Substance: DENOSUMAB
     Indication: INVASIVE DUCTAL BREAST CARCINOMA
     Dosage: UNK
     Route: 065
     Dates: start: 20131204

REACTIONS (8)
  - Tumour marker increased [Unknown]
  - Metastases to ovary [Unknown]
  - Metastases to peritoneum [Unknown]
  - Stomatitis [Unknown]
  - Oedema peripheral [Unknown]
  - Metastases to lung [Unknown]
  - Postmenopausal haemorrhage [Unknown]
  - Metastases to bone [Unknown]

NARRATIVE: CASE EVENT DATE: 2013
